FAERS Safety Report 7477862-7 (Version None)
Quarter: 2011Q2

REPORT INFORMATION
  Report Type: 
  Country: None (occurrence: None)
  Receive Date: 20110513
  Receipt Date: 20101129
  Transmission Date: 20111010
  Serious: Yes (Hospitalization, Other)
  Sender: FDA-Public Use
  Company Number: US-BAYER-201036982NA

PATIENT
  Age: 40 Year
  Sex: Female
  Weight: 98.866 kg

DRUGS (17)
  1. TRIAMTERENE [Concomitant]
     Dosage: UNK
     Dates: start: 20100101
  2. LISINOPRIL [Concomitant]
     Dosage: 20 MG DAILY
     Route: 048
  3. VALIUM [Concomitant]
     Dosage: 5 MG, QID
     Route: 048
  4. ESTRACE [Concomitant]
     Dosage: 2 MG, QD
     Route: 048
     Dates: start: 20090101, end: 20110101
  5. ALDACTONE [Concomitant]
     Indication: HYPERTENSION
     Dosage: UNK
     Dates: start: 20060101
  6. PROPRANOLOL [Concomitant]
     Dosage: 10 MG, BID
     Route: 048
     Dates: start: 20090101
  7. FIORICET [Concomitant]
     Dosage: 2 DF, Q4HR
  8. RANITIDINE [Concomitant]
     Dosage: 150 MG, BID
     Route: 048
  9. PERCOCET [Concomitant]
     Dosage: 7.5 MG, QID
     Route: 048
  10. LISINOPRIL [Concomitant]
     Indication: HYPERTENSION
     Dosage: 20 MG, QD
     Route: 048
     Dates: start: 20070101
  11. NEXIUM [Concomitant]
     Dosage: 40 MG, BID
     Route: 048
  12. PHENERGAN [Concomitant]
     Dosage: 25 MG, PRN
     Route: 048
  13. YAZ [Suspect]
     Indication: PREMENSTRUAL SYNDROME
     Route: 048
     Dates: start: 20060806, end: 20071210
  14. DARVOCET [Concomitant]
     Indication: PAIN
     Dosage: 1 DF, QID
     Route: 048
     Dates: start: 20030101, end: 20090101
  15. ANTIBIOTICS [Concomitant]
     Dosage: UNK
     Dates: start: 20000101
  16. NASONEX [Concomitant]
     Dosage: 50 ?G, BID
     Route: 045
  17. ZANAFLEX [Concomitant]
     Dosage: 2 MG, TID
     Route: 048

REACTIONS (5)
  - CHOLESTEROSIS [None]
  - CHOLELITHIASIS [None]
  - BACK PAIN [None]
  - CEREBROVASCULAR ACCIDENT [None]
  - CHOLECYSTITIS CHRONIC [None]
